FAERS Safety Report 6071704-2 (Version None)
Quarter: 2009Q1

REPORT INFORMATION
  Report Type: 
  Country: None (occurrence: None)
  Receive Date: 20090210
  Receipt Date: 20090206
  Transmission Date: 20090719
  Serious: No
  Sender: FDA-Public Use
  Company Number: US-ASTRAZENECA-2009UW03558

PATIENT
  Age: 16 Year
  Sex: Male

DRUGS (5)
  1. SEROQUEL XR [Suspect]
     Dosage: 200 MG AT NOON, AND 200 MG AT BEDTIME
     Route: 048
  2. DEPAKOTE ER [Suspect]
  3. ABILIFY [Suspect]
  4. KLONOPIN [Concomitant]
  5. CONCERTA [Concomitant]

REACTIONS (1)
  - WHITE BLOOD CELL COUNT DECREASED [None]
